FAERS Safety Report 11211202 (Version 1)
Quarter: 2015Q2

REPORT INFORMATION
  Report Type: Spontaneous
  Country: US (occurrence: None)
  Receive Date: 20150619
  Receipt Date: 20150619
  Transmission Date: 20150821
  Serious: Yes (Hospitalization)
  Sender: FDA-Public Use
  Company Number: None

PATIENT
  Age: 46 Year
  Sex: Female
  Weight: 110 kg

DRUGS (10)
  1. PHOSLO [Concomitant]
     Active Substance: CALCIUM ACETATE
  2. CATAPRES [Concomitant]
     Active Substance: CLONIDINE HYDROCHLORIDE
  3. SILVADENE CREAM [Concomitant]
  4. SENOKOT [Concomitant]
     Active Substance: SENNOSIDES
  5. HUMULIN N [Suspect]
     Active Substance: INSULIN HUMAN
     Indication: DIABETES MELLITUS
     Dosage: 50UNITS  QAM + QPM  SQ
     Route: 058
  6. THERAGRAN [Concomitant]
     Active Substance: VITAMINS
  7. AMLODIPINE [Concomitant]
     Active Substance: AMLODIPINE BESYLATE
  8. FIBERCON [Concomitant]
     Active Substance: CALCIUM POLYCARBOPHIL
  9. COREG [Concomitant]
     Active Substance: CARVEDILOL
  10. IBUPROFEN. [Concomitant]
     Active Substance: IBUPROFEN

REACTIONS (2)
  - Hypoglycaemia [None]
  - Economic problem [None]

NARRATIVE: CASE EVENT DATE: 20150319
